FAERS Safety Report 9454739 (Version 2)
Quarter: 2013Q4

REPORT INFORMATION
  Report Type: Spontaneous
  Country: PT (occurrence: PT)
  Receive Date: 20130812
  Receipt Date: 20131122
  Transmission Date: 20140711
  Serious: Yes (Disabling, Other)
  Sender: FDA-Public Use
  Company Number: PT-MERCK-1308PRT004258

PATIENT
  Age: 11 Year
  Sex: Male
  Weight: 56 kg

DRUGS (3)
  1. SINGULAIR [Suspect]
     Indication: ASTHMA
     Dosage: 5 MG, QD
     Route: 048
     Dates: start: 20130725, end: 20130729
  2. SERETAIDE [Concomitant]
     Indication: ASTHMA
     Dosage: 2 DF, QD
     Route: 055
  3. AERIUS [Concomitant]
     Indication: ASTHMA
     Dosage: 5 MG, QD
     Route: 048

REACTIONS (6)
  - Affect lability [Recovered/Resolved]
  - Nightmare [Recovered/Resolved]
  - Diarrhoea [Recovered/Resolved]
  - Depression [Recovered/Resolved]
  - Abdominal pain [Recovered/Resolved]
  - Palpitations [Recovered/Resolved]
